FAERS Safety Report 9402358 (Version 1)
Quarter: 2013Q3

REPORT INFORMATION
  Report Type: Spontaneous
  Country: FR (occurrence: FR)
  Receive Date: 20130716
  Receipt Date: 20130716
  Transmission Date: 20140515
  Serious: Yes (Life-Threatening, Hospitalization)
  Sender: FDA-Public Use
  Company Number: FR-PFIZER INC-2013203688

PATIENT
  Age: 56 Year
  Sex: Female

DRUGS (5)
  1. ALDACTONE [Suspect]
     Indication: CIRRHOSIS ALCOHOLIC
     Dosage: 50 MG, 1X/DAY
     Route: 048
     Dates: end: 20130626
  2. INEXIUM [Concomitant]
     Dosage: 40 MG, 1X/DAY
     Route: 048
     Dates: start: 201304
  3. AVLOCARDYL [Concomitant]
     Dosage: 40 MG, 2X/DAY
     Route: 048
     Dates: start: 201304
  4. SERESTA [Concomitant]
     Dosage: 10 MG, 1X/DAY
     Route: 048
  5. VITAMIN B1 AND B6 [Concomitant]
     Indication: CIRRHOSIS ALCOHOLIC
     Dosage: UNK

REACTIONS (3)
  - Hyperkalaemia [Recovered/Resolved]
  - Dyspnoea [Unknown]
  - Weight increased [Unknown]
